FAERS Safety Report 15778315 (Version 1)
Quarter: 2018Q4

REPORT INFORMATION
  Report Type: Spontaneous
  Country: US (occurrence: US)
  Receive Date: 20181231
  Receipt Date: 20181231
  Transmission Date: 20190205
  Serious: No
  Sender: FDA-Public Use
  Company Number: US-BAYER-2018-246120

PATIENT
  Age: 48 Year
  Sex: Male
  Weight: 74.41 kg

DRUGS (3)
  1. ONE A DAY 50 PLUS [Suspect]
     Active Substance: VITAMINS
     Dosage: ONE A DAY WITH BREAKFAST.
     Dates: start: 20181101, end: 20181201
  2. CLARITIN [Suspect]
     Active Substance: LORATADINE
     Indication: HYPERSENSITIVITY
     Dosage: UNK EVERY 12 HOURS.
     Route: 048
     Dates: start: 20181001, end: 20181201
  3. CLARITIN [Suspect]
     Active Substance: LORATADINE
     Indication: NASOPHARYNGITIS

REACTIONS (3)
  - Drug effective for unapproved indication [None]
  - Product use in unapproved indication [None]
  - Drug ineffective [None]

NARRATIVE: CASE EVENT DATE: 20181101
